FAERS Safety Report 6378389-6 (Version None)
Quarter: 2009Q3

REPORT INFORMATION
  Report Type: 
  Country: None (occurrence: None)
  Receive Date: 20090925
  Receipt Date: 20090423
  Transmission Date: 20100115
  Serious: Yes (Other)
  Sender: FDA-Public Use
  Company Number: US-ASTRAZENECA-2006UW23298

PATIENT
  Age: 373 Month
  Sex: Male
  Weight: 106.6 kg

DRUGS (2)
  1. SEROQUEL [Suspect]
     Route: 048
     Dates: start: 20031201, end: 20040401
  2. UNSPECIFIED PSYCHIATRIC MEDICATION [Concomitant]
     Indication: MENTAL DISORDER
     Dates: start: 20061001

REACTIONS (2)
  - DIABETES MELLITUS [None]
  - PANCREATITIS [None]
